FAERS Safety Report 11312166 (Version 1)
Quarter: 2015Q3

REPORT INFORMATION
  Report Type: Spontaneous
  Country: US (occurrence: None)
  Receive Date: 20150724
  Receipt Date: 20150724
  Transmission Date: 20151125
  Serious: No
  Sender: FDA-Public Use
  Company Number: None

PATIENT
  Age: 26 Year
  Sex: Female

DRUGS (4)
  1. ONDANSETRON [Concomitant]
     Active Substance: ONDANSETRON
     Indication: COMPUTERISED TOMOGRAM
     Dosage: 3 ML/SEC, ONCE, IV
     Route: 042
     Dates: start: 20150412, end: 20150412
  2. ISOVUE [Suspect]
     Active Substance: IOPAMIDOL
  3. FLUCONAZOLE. [Concomitant]
     Active Substance: FLUCONAZOLE
  4. HYDROMORPHONE [Concomitant]
     Active Substance: HYDROMORPHONE

REACTIONS (4)
  - Urticaria [None]
  - Pruritus [None]
  - Dyspnoea [None]
  - Local swelling [None]

NARRATIVE: CASE EVENT DATE: 20150412
